FAERS Safety Report 8846108 (Version 1)
Quarter: 2012Q4

REPORT INFORMATION
  Report Type: 
  Country: US (occurrence: US)
  Receive Date: 20121017
  Receipt Date: 20121017
  Transmission Date: 20130627
  Serious: Yes (Congenital Anomaly)
  Sender: FDA-Public Use
  Company Number: US-BMSGILMSD-2012-0062910

PATIENT
  Age: 37 Week
  Sex: Female

DRUGS (5)
  1. ATRIPLA [Suspect]
     Indication: HIV INFECTION
     Dosage: UNK, QD
     Route: 064
  2. ATORVASTATIN [Concomitant]
     Indication: HYPERCHOLESTEROLAEMIA
     Route: 064
  3. COMBIVIR [Concomitant]
     Indication: HIV INFECTION
     Route: 064
  4. NELFINAVIR [Concomitant]
     Indication: HIV INFECTION
     Route: 064
  5. INSULIN [Concomitant]
     Indication: GESTATIONAL DIABETES
     Dosage: UNK, TID
     Route: 064

REACTIONS (5)
  - Cleft lip and palate [Unknown]
  - Microphthalmos [Unknown]
  - Congenital musculoskeletal anomaly [Unknown]
  - Limb malformation [Unknown]
  - Head circumference abnormal [Unknown]
